FAERS Safety Report 25246393 (Version 1)
Quarter: 2025Q2

REPORT INFORMATION
  Report Type: Spontaneous
  Country: GB (occurrence: GB)
  Receive Date: 20250428
  Receipt Date: 20250428
  Transmission Date: 20250717
  Serious: Yes (Hospitalization, Other)
  Sender: B BRAUN
  Company Number: GB-B.Braun Medical Inc.-2175748

PATIENT
  Sex: Female

DRUGS (19)
  1. ACETAMINOPHEN [Suspect]
     Active Substance: ACETAMINOPHEN
  2. CHOLECALCIFEROL [Concomitant]
     Active Substance: CHOLECALCIFEROL
  3. RAMIPRIL [Suspect]
     Active Substance: RAMIPRIL
  4. MIRTAZAPINE [Suspect]
     Active Substance: MIRTAZAPINE
  5. LANSOPRAZOLE [Suspect]
     Active Substance: LANSOPRAZOLE
  6. CLOPIDOGREL [Suspect]
     Active Substance: CLOPIDOGREL BISULFATE
  7. ASPIRIN [Suspect]
     Active Substance: ASPIRIN
  8. ALENDRONATE SODIUM [Suspect]
     Active Substance: ALENDRONATE SODIUM
  9. CALCIUM CARBONATE [Suspect]
     Active Substance: CALCIUM CARBONATE
  10. AMLODIPINE [Suspect]
     Active Substance: AMLODIPINE BESYLATE
  11. ATORVASTATIN [Suspect]
     Active Substance: ATORVASTATIN
  12. ESCITALOPRAM [Suspect]
     Active Substance: ESCITALOPRAM OXALATE
  13. FLUOXETINE [Suspect]
     Active Substance: FLUOXETINE HYDROCHLORIDE
  14. METFORMIN [Suspect]
     Active Substance: METFORMIN HYDROCHLORIDE
  15. IBUPROFEN [Suspect]
     Active Substance: IBUPROFEN
  16. SIMVASTATIN [Concomitant]
     Active Substance: SIMVASTATIN
  17. LANTUS [Concomitant]
     Active Substance: INSULIN GLARGINE
  18. CITALOPRAM [Concomitant]
     Active Substance: CITALOPRAM
  19. CETIRIZINE [Concomitant]
     Active Substance: CETIRIZINE HYDROCHLORIDE

REACTIONS (29)
  - Fatigue [Unknown]
  - Flank pain [Unknown]
  - Abdominal discomfort [Unknown]
  - Diarrhoea [Unknown]
  - Oedema peripheral [Unknown]
  - Agitation [Unknown]
  - Asthenia [Unknown]
  - Osteitis [Unknown]
  - Chronic fatigue syndrome [Unknown]
  - Off label use [Recovered/Resolved]
  - Nausea [Unknown]
  - Muscle twitching [Unknown]
  - Constipation [Not Recovered/Not Resolved]
  - Arthritis [Not Recovered/Not Resolved]
  - Asthenia [Unknown]
  - General physical health deterioration [Not Recovered/Not Resolved]
  - Tooth fracture [Not Recovered/Not Resolved]
  - Product use in unapproved indication [Unknown]
  - Labyrinthitis [Not Recovered/Not Resolved]
  - Noninfective gingivitis [Unknown]
  - Loose tooth [Not Recovered/Not Resolved]
  - Mobility decreased [Not Recovered/Not Resolved]
  - Malaise [Not Recovered/Not Resolved]
  - Angiopathy [Unknown]
  - Blood calcium decreased [Unknown]
  - Coordination abnormal [Unknown]
  - Balance disorder [Unknown]
  - Fall [Unknown]
  - Arthralgia [Unknown]
